FAERS Safety Report 5507519-0 (Version None)
Quarter: 2007Q4

REPORT INFORMATION
  Report Type: 
  Country: None (occurrence: None)
  Receive Date: 20071102
  Receipt Date: 20071018
  Transmission Date: 20080405
  Serious: Yes (Other)
  Sender: FDA-Public Use
  Company Number: STI-2007-01740

PATIENT
  Age: 48 Year

DRUGS (1)
  1. HYDROQUINONE (UNSPECIFIED) (HYDROQUINONE) (HYDROQUINONE) [Suspect]
     Indication: SKIN COSMETIC PROCEDURE

REACTIONS (3)
  - OFF LABEL USE [None]
  - SKIN DISORDER [None]
  - SUNBURN [None]
